FAERS Safety Report 4768314-3 (Version None)
Quarter: 2005Q3

REPORT INFORMATION
  Report Type: 
  Country: None (occurrence: None)
  Receive Date: 20050914
  Receipt Date: 20050901
  Transmission Date: 20060218
  Serious: Yes (Other)
  Sender: FDA-Public Use
  Company Number: 2005GB01694

PATIENT
  Sex: Female

DRUGS (2)
  1. LOSEC [Suspect]
     Indication: REFLUX OESOPHAGITIS
     Route: 048
  2. UNSPECIFIED [Concomitant]

REACTIONS (2)
  - BLOOD DISORDER [None]
  - PANCYTOPENIA [None]
